FAERS Safety Report 9314835 (Version 3)
Quarter: 2014Q1

REPORT INFORMATION
  Report Type: Spontaneous
  Country: US (occurrence: US)
  Receive Date: 20130529
  Receipt Date: 20140107
  Transmission Date: 20141002
  Serious: Yes (Hospitalization)
  Sender: FDA-Public Use
  Company Number: US-B.I. PHARMACEUTICALS,INC./RIDGEFIELD-2013-BI-14233BP

PATIENT
  Sex: Male
  Weight: 73.3 kg

DRUGS (12)
  1. PRADAXA [Suspect]
     Indication: ATRIAL FIBRILLATION
     Dosage: 300 MG
     Dates: start: 20110526, end: 20111012
  2. PRADAXA [Suspect]
     Dosage: 150 MG
     Dates: start: 20111012, end: 20111210
  3. PLAVIX [Concomitant]
     Dosage: 75 MG
     Route: 048
     Dates: start: 20051110
  4. GLIMEPIRIDE [Concomitant]
     Dosage: 1 MG
     Route: 048
     Dates: start: 20070319
  5. METFORMIN [Concomitant]
     Dosage: 1000 MG
     Route: 048
     Dates: start: 20051017
  6. CARVEDILOL [Concomitant]
     Dates: start: 20091214, end: 20120512
  7. ASPIRIN [Concomitant]
     Dosage: 81 MG
     Route: 048
  8. MULTAQ [Concomitant]
     Dosage: 800 MG
     Route: 048
  9. HYZAAR [Concomitant]
  10. LOSARTAN [Concomitant]
  11. VYTORIN [Concomitant]
  12. PRESERVISION [Concomitant]
     Route: 048

REACTIONS (5)
  - Gastrointestinal haemorrhage [Unknown]
  - Haemorrhagic anaemia [Unknown]
  - Acute myocardial infarction [Unknown]
  - Increased tendency to bruise [Unknown]
  - Haemorrhagic diathesis [Unknown]
